FAERS Safety Report 23825684 (Version 2)
Quarter: 2024Q2

REPORT INFORMATION
  Report Type: Report from Study
  Country: US (occurrence: US)
  Receive Date: 20240507
  Receipt Date: 20240606
  Transmission Date: 20240716
  Serious: Yes (Disabling, Other)
  Sender: FDA-Public Use
  Company Number: US-JNJFOC-20240317935

PATIENT
  Age: 84 Year
  Sex: Male

DRUGS (2)
  1. BALVERSA [Suspect]
     Active Substance: ERDAFITINIB
     Indication: Bladder cancer
     Dosage: 2 TABLET OF 4MG TABLET ORAL A DAY
     Route: 048
     Dates: start: 202401, end: 20240305
  2. BALVERSA [Suspect]
     Active Substance: ERDAFITINIB
     Indication: Lung neoplasm malignant
     Route: 065

REACTIONS (1)
  - Central serous chorioretinopathy [Recovered/Resolved]

NARRATIVE: CASE EVENT DATE: 20240101
